FAERS Safety Report 22779100 (Version 5)
Quarter: 2024Q1

REPORT INFORMATION
  Report Type: Spontaneous
  Country: US (occurrence: US)
  Receive Date: 20230802
  Receipt Date: 20240129
  Transmission Date: 20240409
  Serious: No
  Sender: FDA-Public Use
  Company Number: US-PFIZER INC-PV202300131880

PATIENT
  Age: 94 Year
  Sex: Female

DRUGS (2)
  1. IBRANCE [Suspect]
     Active Substance: PALBOCICLIB
     Indication: Breast cancer metastatic
     Dosage: 100 MG, CYCLIC (ONCE A DAY ON DAYS 1-21, OFF 7 DAYS)
     Route: 048
  2. IBRANCE [Suspect]
     Active Substance: PALBOCICLIB
     Dosage: 75 MG (TAKE ON DAYS 1-21 OF EVERY 28 DAY CYCLE)
     Route: 048

REACTIONS (2)
  - Hypoacusis [Unknown]
  - Malaise [Unknown]
